FAERS Safety Report 13152440 (Version 1)
Quarter: 2017Q1

REPORT INFORMATION
  Report Type: Not Available
  Country: US (occurrence: US)
  Receive Date: 20170125
  Receipt Date: 20170125
  Transmission Date: 20170428
  Serious: Yes (Death)
  Sender: FDA-Public Use
  Company Number: US-MIDATECHPHARMA-2017-US-000687

PATIENT
  Age: 4 Day
  Sex: Male

DRUGS (4)
  1. SERTRALINE [Suspect]
     Active Substance: SERTRALINE HYDROCHLORIDE
     Dosage: MATERNAL USE IN INITIAL TWO TRIMESTERS OF PREGNANCY
     Route: 015
  2. ESCITALOPRAM [Suspect]
     Active Substance: ESCITALOPRAM OXALATE
     Dosage: MATERNAL USE IN FINAL TRIMESTER OF PREGNANCY
     Route: 015
  3. ONDANSETRON (NON-SPECIFIC) [Suspect]
     Active Substance: ONDANSETRON
     Route: 015
  4. PROGESTERONE. [Suspect]
     Active Substance: PROGESTERONE
     Dosage: MATERNAL USE FROM 16TH WEEK OF PREGNANCY
     Route: 015

REACTIONS (6)
  - Cardiac failure [Fatal]
  - Congenital cardiovascular anomaly [Unknown]
  - Congestive cardiomyopathy [Fatal]
  - Congenital infection [Unknown]
  - Human herpesvirus 6 infection [Unknown]
  - Multiple organ dysfunction syndrome [Unknown]
